FAERS Safety Report 7146278-5 (Version None)
Quarter: 2010Q4

REPORT INFORMATION
  Report Type: 
  Country: None (occurrence: None)
  Receive Date: 20101208
  Receipt Date: 20101202
  Transmission Date: 20110411
  Serious: Yes (Hospitalization)
  Sender: FDA-Public Use
  Company Number: DE-US-EMD SERONO, INC.-7030346

PATIENT
  Sex: Female

DRUGS (3)
  1. REBIF [Suspect]
     Indication: MULTIPLE SCLEROSIS
  2. REBIF [Suspect]
     Dates: start: 20100901
  3. IBUPROFEN [Concomitant]

REACTIONS (2)
  - ERYTHEMA [None]
  - INTESTINAL HAEMORRHAGE [None]
